FAERS Safety Report 9831108 (Version 1)
Quarter: 2014Q1

REPORT INFORMATION
  Report Type: Spontaneous
  Country: US (occurrence: US)
  Receive Date: 20140121
  Receipt Date: 20140121
  Transmission Date: 20141002
  Serious: No
  Sender: FDA-Public Use
  Company Number: US-009507513-1401USA006785

PATIENT
  Sex: Female

DRUGS (7)
  1. FOSAMAX [Suspect]
     Indication: PROPHYLAXIS
     Dosage: 70 MG/ ONCE A WEEK
     Route: 048
     Dates: start: 201208
  2. FOSAMAX [Suspect]
     Dosage: UNK
     Route: 048
  3. NEXIUM [Concomitant]
     Route: 048
  4. METHOTREXATE [Concomitant]
     Route: 048
  5. PLAQUENIL [Concomitant]
  6. FOLIC ACID [Concomitant]
  7. CELEBREX [Concomitant]

REACTIONS (5)
  - Malaise [Unknown]
  - Back pain [Unknown]
  - Muscle spasms [Unknown]
  - Arthralgia [Unknown]
  - Drug ineffective [Unknown]
